FAERS Safety Report 4723807-X (Version None)
Quarter: 2005Q3

REPORT INFORMATION
  Report Type: 
  Country: None (occurrence: None)
  Receive Date: 20050721
  Receipt Date: 20050711
  Transmission Date: 20060218
  Serious: Yes (Hospitalization)
  Sender: FDA-Public Use
  Company Number: 2005-01246

PATIENT
  Age: 59 Year
  Sex: Male

DRUGS (2)
  1. IMMUCYST [Suspect]
     Indication: MALIGNANT NEOPLASM OF RENAL PELVIS
     Dosage: I.VES., BLADDER
     Dates: start: 20050502, end: 20050613
  2. ISONIAZID [Concomitant]

REACTIONS (1)
  - HYPERTONIC BLADDER [None]
